FAERS Safety Report 8141186-5 (Version None)
Quarter: 2012Q1

REPORT INFORMATION
  Report Type: 
  Country: None (occurrence: None)
  Receive Date: 20120216
  Receipt Date: 20120207
  Transmission Date: 20120608
  Serious: Yes (Hospitalization)
  Sender: FDA-Public Use
  Company Number: US-ALLERGAN-1116972US

PATIENT
  Age: 31 Year
  Sex: Female

DRUGS (7)
  1. DIAXANOL [Concomitant]
     Indication: PRODUCT USED FOR UNKNOWN INDICATION
  2. GLUTAMINE [Concomitant]
     Indication: PRODUCT USED FOR UNKNOWN INDICATION
  3. BOTOX COSMETIC [Suspect]
     Indication: SKIN WRINKLING
     Dosage: 25 UNITS, SINGLE
     Route: 030
     Dates: start: 20111228
  4. GABATROL [Concomitant]
     Indication: PRODUCT USED FOR UNKNOWN INDICATION
  5. BIRTH CONTROL PILLS [Concomitant]
     Indication: PRODUCT USED FOR UNKNOWN INDICATION
  6. IBUPROFEN (ADVIL) [Concomitant]
     Indication: PRODUCT USED FOR UNKNOWN INDICATION
  7. ADAPTANALL [Concomitant]
     Indication: PRODUCT USED FOR UNKNOWN INDICATION
     Dosage: UNK

REACTIONS (3)
  - PULMONARY EMBOLISM [None]
  - DYSPNOEA [None]
  - ANXIETY [None]
